FAERS Safety Report 15180513 (Version 5)
Quarter: 2020Q3

REPORT INFORMATION
  Report Type: Spontaneous
  Country: CA (occurrence: CA)
  Receive Date: 20180723
  Receipt Date: 20200810
  Transmission Date: 20201102
  Serious: Yes (Hospitalization, Other)
  Sender: FDA-Public Use
  Company Number: CA-009507513-1807CAN008457

PATIENT
  Age: 69 Year
  Sex: Female

DRUGS (2)
  1. FOSAMAX [Suspect]
     Active Substance: ALENDRONATE SODIUM
     Indication: OSTEOPOROSIS
     Dosage: 20 MG, ONCE/WEEK
     Route: 048
     Dates: start: 2001, end: 2007
  2. ACTONEL [Suspect]
     Active Substance: RISEDRONATE SODIUM
     Indication: OSTEOPOROSIS
     Dosage: 35 MG, ONCE/WEEK
     Route: 048
     Dates: start: 2007, end: 2017

REACTIONS (4)
  - Pathological fracture [Unknown]
  - Arthralgia [Recovered/Resolved]
  - Pelvic pain [Recovered/Resolved]
  - Pelvic fracture [Unknown]

NARRATIVE: CASE EVENT DATE: 201708
